FAERS Safety Report 9757178 (Version 1)
Quarter: 2013Q4

REPORT INFORMATION
  Report Type: Spontaneous
  Country: US (occurrence: US)
  Receive Date: 20131213
  Receipt Date: 20131213
  Transmission Date: 20140711
  Serious: Yes (Hospitalization)
  Sender: FDA-Public Use
  Company Number: US-ASTRAZENECA-2013SE89605

PATIENT
  Sex: Male

DRUGS (1)
  1. ENTOCORT EC [Suspect]
     Indication: CROHN^S DISEASE
     Route: 048

REACTIONS (2)
  - Crohn^s disease [Unknown]
  - Intentional drug misuse [Unknown]
